FAERS Safety Report 7351873-4 (Version None)
Quarter: 2011Q1

REPORT INFORMATION
  Report Type: 
  Country: None (occurrence: None)
  Receive Date: 20110315
  Receipt Date: 20110214
  Transmission Date: 20110831
  Serious: Yes (Other)
  Sender: FDA-Public Use
  Company Number: US-BAYER-201024391NA

PATIENT
  Sex: Female
  Weight: 65.76 kg

DRUGS (7)
  1. PHENTERMINE [Concomitant]
  2. OCELLA [Suspect]
     Indication: ORAL CONTRACEPTION
     Dosage: UNK UNK, QD
     Route: 048
  3. IBUPROFEN [Concomitant]
     Dosage: UNK
     Dates: start: 20000101
  4. YASMIN [Suspect]
     Indication: ORAL CONTRACEPTION
     Dosage: UNK UNK, QD
     Route: 048
  5. MEPERGAN FORTIS [Concomitant]
  6. ZOLOFT [Concomitant]
     Dosage: 100 MG, UNK
     Route: 048
  7. ADIPEX [Concomitant]

REACTIONS (5)
  - ABDOMINAL PAIN [None]
  - ABDOMINAL DISTENSION [None]
  - PHLEBOLITH [None]
  - UTERINE HAEMORRHAGE [None]
  - CHOLECYSTITIS CHRONIC [None]
